FAERS Safety Report 4498538-4 (Version None)
Quarter: 2004Q4

REPORT INFORMATION
  Report Type: 
  Country: None (occurrence: None)
  Receive Date: 20041111
  Receipt Date: 20041102
  Transmission Date: 20050328
  Serious: Yes (Hospitalization)
  Sender: FDA-Public Use
  Company Number: US-JNJFOC-20040909163

PATIENT
  Age: 65 Year
  Sex: Male
  Weight: 88.6 kg

DRUGS (5)
  1. REMICADE [Suspect]
     Dates: start: 20040924
  2. ASACOL [Concomitant]
     Dosage: 3 TABLETS
     Route: 049
  3. FLOMAX [Concomitant]
     Route: 049
  4. NOVOLIN [Concomitant]
     Indication: DIABETES MELLITUS
     Dosage: 70/30
     Route: 058
  5. PREDNISONE [Concomitant]

REACTIONS (5)
  - CONDITION AGGRAVATED [None]
  - ESCHERICHIA BACTERAEMIA [None]
  - NEPHROLITHIASIS [None]
  - SEPTIC SHOCK [None]
  - UROSEPSIS [None]
